FAERS Safety Report 12407166 (Version 1)
Quarter: 2016Q2

REPORT INFORMATION
  Report Type: Spontaneous
  Country: US (occurrence: US)
  Receive Date: 20160526
  Receipt Date: 20160526
  Transmission Date: 20160815
  Serious: No
  Sender: FDA-Public Use
  Company Number: US-PFIZER INC-2016270146

PATIENT
  Sex: Female

DRUGS (2)
  1. SERTRALINE HCL [Suspect]
     Active Substance: SERTRALINE HYDROCHLORIDE
     Dosage: 50 MG, UNK
  2. DULOXETINE. [Suspect]
     Active Substance: DULOXETINE
     Dosage: UNK

REACTIONS (8)
  - Agitation [Unknown]
  - Dysphonia [Unknown]
  - Dry throat [Unknown]
  - Cough [Unknown]
  - Dry mouth [Unknown]
  - Diarrhoea [Unknown]
  - Malaise [Unknown]
  - Alopecia [Unknown]
